FAERS Safety Report 13002936 (Version 1)
Quarter: 2016Q4

REPORT INFORMATION
  Report Type: Spontaneous
  Country: US (occurrence: US)
  Receive Date: 20161205
  Receipt Date: 20161205
  Transmission Date: 20170207
  Serious: Yes (Other)
  Sender: FDA-Public Use
  Company Number: None

PATIENT
  Age: 67 Year
  Sex: Male
  Weight: 83.2 kg

DRUGS (4)
  1. CRESTOR [Suspect]
     Active Substance: ROSUVASTATIN CALCIUM
     Indication: BLOOD CHOLESTEROL INCREASED
     Dosage: ?          QUANTITY:1 TABLET(S);OTHER FREQUENCY:EVERY OTHER DAY;?
     Route: 048
     Dates: start: 20161123, end: 20161128
  2. MULTI VITAMIN [Concomitant]
     Active Substance: VITAMINS
  3. SAW PALMETTO [Concomitant]
     Active Substance: SAW PALMETTO
  4. ASPIRIN. [Concomitant]
     Active Substance: ASPIRIN

REACTIONS (1)
  - Tooth infection [None]

NARRATIVE: CASE EVENT DATE: 20161130
